FAERS Safety Report 21042496 (Version 1)
Quarter: 2022Q3

REPORT INFORMATION
  Report Type: Spontaneous
  Country: SE (occurrence: SE)
  Receive Date: 20220705
  Receipt Date: 20220705
  Transmission Date: 20221027
  Serious: Yes (Death, Life-Threatening, Hospitalization, Other)
  Sender: FDA-Public Use
  Company Number: SE-ALVOGEN-2022-ALVOGEN-120613

PATIENT
  Age: 14 Year
  Sex: Female

DRUGS (2)
  1. SERTRALINE [Suspect]
     Active Substance: SERTRALINE HYDROCHLORIDE
     Indication: Acute psychosis
  2. OLANZAPINE [Suspect]
     Active Substance: OLANZAPINE
     Indication: Acute psychosis

REACTIONS (6)
  - Hyperthermia [Fatal]
  - Rhabdomyolysis [Fatal]
  - Hepatic failure [Fatal]
  - Renal failure [Fatal]
  - Drug ineffective [Fatal]
  - Brain oedema [Fatal]
